FAERS Safety Report 17698248 (Version 3)
Quarter: 2021Q1

REPORT INFORMATION
  Report Type: Spontaneous
  Country: US (occurrence: US)
  Receive Date: 20200423
  Receipt Date: 20210301
  Transmission Date: 20210419
  Serious: Yes (Other)
  Sender: FDA-Public Use
  Company Number: US-PFIZER INC-2020159197

PATIENT
  Age: 75 Year
  Sex: Female
  Weight: 76.64 kg

DRUGS (2)
  1. BOSULIF [Suspect]
     Active Substance: BOSUTINIB MONOHYDRATE
     Indication: PHILADELPHIA CHROMOSOME POSITIVE
  2. BOSULIF [Suspect]
     Active Substance: BOSUTINIB MONOHYDRATE
     Indication: CHRONIC MYELOID LEUKAEMIA
     Dosage: 100 MG, DAILY
     Route: 048
     Dates: start: 20180402

REACTIONS (3)
  - Vomiting [Unknown]
  - Diarrhoea [Unknown]
  - Illness [Unknown]
